FAERS Safety Report 5573650-7 (Version None)
Quarter: 2007Q4

REPORT INFORMATION
  Report Type: 
  Country: None (occurrence: None)
  Receive Date: 20071220
  Receipt Date: 20071203
  Transmission Date: 20080405
  Serious: Yes (Death, Hospitalization)
  Sender: FDA-Public Use
  Company Number: 8027768

PATIENT
  Age: 59 Year
  Sex: Female
  Weight: 88 kg

DRUGS (5)
  1. KEPPRA [Suspect]
     Dosage: 500 MG 2/D PO
     Route: 048
  2. TEMOZOLOMIDE [Suspect]
     Indication: GLIOBLASTOMA MULTIFORME
     Dosage: 75 MG/M2  /D PO
     Route: 048
     Dates: start: 20070716, end: 20070801
  3. TEMOZOLOMIDE [Suspect]
     Indication: GLIOBLASTOMA MULTIFORME
     Dosage: 1450 MG PO
     Route: 048
     Dates: start: 20070927, end: 20071001
  4. BACTRIM DS [Suspect]
     Dosage: 3/W PO
     Route: 048
     Dates: start: 20070716
  5. DECADRON [Suspect]
     Dosage: 4 MG /D PO
     Route: 048

REACTIONS (6)
  - CUSHING'S SYNDROME [None]
  - GLIOBLASTOMA MULTIFORME [None]
  - LYMPHOPENIA [None]
  - MALIGNANT NEOPLASM PROGRESSION [None]
  - OPPORTUNISTIC INFECTION [None]
  - ORAL CANDIDIASIS [None]
